FAERS Safety Report 12630023 (Version 1)
Quarter: 2016Q3

REPORT INFORMATION
  Report Type: Spontaneous
  Country: US (occurrence: US)
  Receive Date: 20160808
  Receipt Date: 20160808
  Transmission Date: 20161109
  Serious: Yes (Hospitalization)
  Sender: FDA-Public Use
  Company Number: US-TARO PHARMACEUTICALS USA.,INC-2016SUN00388

PATIENT
  Age: 54 Year
  Sex: Male

DRUGS (2)
  1. ACETAMINOPHEN. [Concomitant]
     Active Substance: ACETAMINOPHEN
     Dosage: 650 MG, EVERY 6 HOURS AS NEEDED
     Route: 048
  2. PHENYTOIN SODIUM. [Suspect]
     Active Substance: PHENYTOIN SODIUM
     Indication: SEIZURE
     Dosage: 300 MG, DAILY
     Route: 048

REACTIONS (5)
  - Fall [Unknown]
  - Accidental overdose [Recovered/Resolved]
  - Hip fracture [Unknown]
  - Electrocardiogram abnormal [Recovered/Resolved]
  - Anticonvulsant drug level above therapeutic [Recovered/Resolved]
